FAERS Safety Report 4387305-8 (Version None)
Quarter: 2004Q2

REPORT INFORMATION
  Report Type: 
  Country: None (occurrence: None)
  Receive Date: 20040630
  Receipt Date: 20040406
  Transmission Date: 20050107
  Serious: No
  Sender: FDA-Public Use
  Company Number: US-GLAXOSMITHKLINE-A0506318A

PATIENT
  Sex: Female

DRUGS (1)
  1. ADVAIR HFA [Suspect]
     Indication: ASTHMA
     Dosage: 2PUFF PER DAY
     Route: 055

REACTIONS (1)
  - NERVOUSNESS [None]
